FAERS Safety Report 9756406 (Version 1)
Quarter: 2013Q4

REPORT INFORMATION
  Report Type: Spontaneous
  Country: US (occurrence: US)
  Receive Date: 20131213
  Receipt Date: 20131213
  Transmission Date: 20140711
  Serious: No
  Sender: FDA-Public Use
  Company Number: US-GLAXOSMITHKLINE-A1040425A

PATIENT
  Age: 50 Year
  Sex: Female

DRUGS (2)
  1. NICODERM CQ CLEAR 14MG [Suspect]
     Indication: EX-TOBACCO USER
     Dates: start: 20130823, end: 20130904
  2. XANAX [Concomitant]

REACTIONS (7)
  - Dizziness [Unknown]
  - Euphoric mood [Unknown]
  - Drug interaction [Unknown]
  - Product quality issue [Unknown]
  - Fatigue [Unknown]
  - Sinus disorder [Unknown]
  - Drug administration error [Unknown]
